FAERS Safety Report 4612985-9 (Version None)
Quarter: 2005Q1

REPORT INFORMATION
  Report Type: 
  Country: None (occurrence: None)
  Receive Date: 20050318
  Receipt Date: 20050307
  Transmission Date: 20050727
  Serious: Yes (Hospitalization)
  Sender: FDA-Public Use
  Company Number: US-JNJFOC-20050200669

PATIENT
  Sex: Female

DRUGS (4)
  1. REMICADE [Suspect]
     Indication: CROHN'S DISEASE
     Route: 042
  2. KEPPRA [Concomitant]
  3. METOPROLOL TARTRATE [Concomitant]
  4. 6-MP [Concomitant]

REACTIONS (4)
  - CHRONIC HEPATITIS [None]
  - COMA [None]
  - ENCEPHALOPATHY [None]
  - HEPATOTOXICITY [None]
